FAERS Safety Report 8910637 (Version 1)
Quarter: 2012Q4

REPORT INFORMATION
  Report Type: Spontaneous
  Country: BA (occurrence: None)
  Receive Date: 20121108
  Receipt Date: 20121108
  Transmission Date: 20130627
  Serious: Yes (Hospitalization)
  Sender: FDA-Public Use
  Company Number: HALO20120011

PATIENT
  Age: 63 Year
  Sex: Female

DRUGS (2)
  1. HALOPERIDOL [Suspect]
     Indication: SCHIZOPHRENIA, PARANOID TYPE
     Dosage: 50 mg,  UNKNOWN,  Unknown
     Dates: start: 1984
  2. CLOZAPINE [Suspect]
     Indication: SCHIZOPHRENIA, PARANOID TYPE
     Dosage: 300  mg,  UNKNOWN,  Unknown
     Dates: start: 1984

REACTIONS (4)
  - Pulmonary embolism [None]
  - International normalised ratio increased [None]
  - Activated partial thromboplastin time prolonged [None]
  - Blood prolactin increased [None]
